FAERS Safety Report 7579531-1 (Version None)
Quarter: 2011Q2

REPORT INFORMATION
  Report Type: 
  Country: None (occurrence: None)
  Receive Date: 20110629
  Receipt Date: 20110616
  Transmission Date: 20111010
  Serious: Yes (Other)
  Sender: FDA-Public Use
  Company Number: US-BAYER-2011-019407

PATIENT
  Age: 40 Year
  Sex: Female

DRUGS (3)
  1. PREDNISONE [Suspect]
     Dosage: UNK
     Route: 048
     Dates: start: 20110131
  2. SOLU-MEDROL [Concomitant]
     Dosage: UNK UNK, QD
     Route: 042
     Dates: start: 20110224, end: 20110226
  3. BETASERON [Suspect]
     Indication: MULTIPLE SCLEROSIS
     Dosage: 8 MIU, QOD
     Route: 058
     Dates: start: 20101011

REACTIONS (15)
  - TINNITUS [None]
  - BALANCE DISORDER [None]
  - INJECTION SITE ERYTHEMA [None]
  - INTENTIONAL SELF-INJURY [None]
  - MULTIPLE SCLEROSIS RELAPSE [None]
  - SUICIDAL IDEATION [None]
  - INJECTION SITE RASH [None]
  - ABNORMAL BEHAVIOUR [None]
  - INJECTION SITE URTICARIA [None]
  - EAR DISCOMFORT [None]
  - INSOMNIA [None]
  - FALL [None]
  - INJECTION SITE NODULE [None]
  - VESTIBULAR NEURONITIS [None]
  - CRYING [None]
